FAERS Safety Report 13641121 (Version 1)
Quarter: 2017Q2

REPORT INFORMATION
  Report Type: Spontaneous
  Country: CM (occurrence: CM)
  Receive Date: 20170612
  Receipt Date: 20170612
  Transmission Date: 20170830
  Serious: Yes (Hospitalization, Other)
  Sender: FDA-Public Use
  Company Number: CM-ASTRAZENECA-2017SE60185

PATIENT
  Age: 42 Year
  Sex: Female

DRUGS (1)
  1. INEXIUM [Suspect]
     Active Substance: ESOMEPRAZOLE
     Indication: ABDOMINAL PAIN UPPER
     Route: 048

REACTIONS (7)
  - Stevens-Johnson syndrome [Unknown]
  - Asthenia [Unknown]
  - Pyrexia [Unknown]
  - Dermatosis [Unknown]
  - Pruritus generalised [Unknown]
  - Nausea [Unknown]
  - Dysphagia [Unknown]

NARRATIVE: CASE EVENT DATE: 20170422
